FAERS Safety Report 13031675 (Version 2)
Quarter: 2022Q3

REPORT INFORMATION
  Report Type: Spontaneous
  Country: IT (occurrence: IT)
  Receive Date: 20161215
  Receipt Date: 20220903
  Transmission Date: 20221027
  Serious: Yes (Death, Hospitalization, Other)
  Sender: FDA-Public Use
  Company Number: IT-SA-2016SA223451

PATIENT
  Age: 55 Year
  Sex: Male

DRUGS (9)
  1. FLUDARABINE PHOSPHATE [Suspect]
     Active Substance: FLUDARABINE PHOSPHATE
     Indication: Bone marrow conditioning regimen
     Dosage: 30 MG/M2,QD
     Dates: start: 201011
  2. METHYLPREDNISOLONE [Suspect]
     Active Substance: METHYLPREDNISOLONE
     Indication: Prophylaxis against graft versus host disease
     Dosage: UNK UNK,UNK
     Route: 065
  3. METHYLPREDNISOLONE [Suspect]
     Active Substance: METHYLPREDNISOLONE
     Dosage: 2 MG/KG,UNK
  4. MYCOPHENOLIC ACID [Suspect]
     Active Substance: MYCOPHENOLIC ACID
     Indication: Prophylaxis against graft versus host disease
     Dosage: UNK UNK, UNK
     Route: 065
     Dates: start: 20101226
  5. CYCLOSPORINE [Suspect]
     Active Substance: CYCLOSPORINE
     Indication: Prophylaxis against graft versus host disease
     Dosage: UNK UNK,UNK
     Route: 065
     Dates: start: 201011, end: 20101226
  6. CYCLOSPORINE [Suspect]
     Active Substance: CYCLOSPORINE
     Dosage: UNK UNK,UNK
     Route: 065
     Dates: start: 201101
  7. THIOTEPA [Concomitant]
     Active Substance: THIOTEPA
     Indication: Bone marrow conditioning regimen
     Dosage: 2.5 MG/KG,Q12H
     Dates: start: 201011
  8. THYMOCYTE IMMUNE GLOBULIN NOS [Concomitant]
     Active Substance: THYMOCYTE IMMUNE GLOBULIN NOS
     Indication: Bone marrow conditioning regimen
     Dosage: 2.5 MG/KG,QD
     Dates: start: 201011
  9. METHOTREXATE [Concomitant]
     Active Substance: METHOTREXATE
     Indication: Prophylaxis against graft versus host disease
     Dosage: UNK
     Dates: start: 201011

REACTIONS (20)
  - Neurotoxicity [Fatal]
  - Off label use [Fatal]
  - Toxic leukoencephalopathy [Fatal]
  - Confusional state [Fatal]
  - Magnetic resonance imaging head abnormal [Fatal]
  - Paraplegia [Fatal]
  - Hypoaesthesia [Fatal]
  - Loss of proprioception [Fatal]
  - Altered state of consciousness [Fatal]
  - Visual impairment [Fatal]
  - Sensorimotor disorder [Fatal]
  - Delirium [Fatal]
  - Cognitive disorder [Fatal]
  - Brain oedema [Fatal]
  - Blindness cortical [Fatal]
  - Acute graft versus host disease in skin [Fatal]
  - Drug ineffective [Fatal]
  - Acute graft versus host disease in intestine [Fatal]
  - Acute graft versus host disease in liver [Fatal]
  - Hepatic failure [Fatal]

NARRATIVE: CASE EVENT DATE: 20101225
